FAERS Safety Report 8776406 (Version 2)
Quarter: 2012Q4

REPORT INFORMATION
  Report Type: 
  Country: NL (occurrence: NL)
  Receive Date: 20120910
  Receipt Date: 20120919
  Transmission Date: 20130627
  Serious: Yes (Death)
  Sender: FDA-Public Use
  Company Number: PHHY2012NL078091

PATIENT
  Sex: Male

DRUGS (4)
  1. ZOMETA [Suspect]
     Indication: MULTIPLE MYELOMA
     Dosage: 4 mg/100 ml, 1x per 28 days
  2. ZOMETA [Suspect]
     Dosage: 4 mg/100 ml, 1x per 28 days
     Dates: start: 20120426
  3. ZOMETA [Suspect]
     Dosage: 4 mg/100 ml, 1x per 28 days
     Dates: start: 20120717
  4. ZOMETA [Suspect]
     Dosage: 4 mg/100 ml, 1x per 28 days
     Dates: start: 20120815

REACTIONS (3)
  - Metastases to penis [Fatal]
  - Inflammation [Fatal]
  - Sepsis [Fatal]
